FAERS Safety Report 6939639-8 (Version None)
Quarter: 2010Q3

REPORT INFORMATION
  Report Type: 
  Country: None (occurrence: None)
  Receive Date: 20100825
  Receipt Date: 20100816
  Transmission Date: 20110219
  Serious: Yes (Hospitalization, Other)
  Sender: FDA-Public Use
  Company Number: US-ASTRAZENECA-2007UW06000

PATIENT
  Age: 11280 Day
  Sex: Female
  Weight: 154.2 kg

DRUGS (22)
  1. SEROQUEL [Suspect]
     Indication: BIPOLAR DISORDER
     Route: 048
     Dates: start: 19990501, end: 20050127
  2. SEROQUEL [Suspect]
     Indication: SCHIZOPHRENIA
     Route: 048
     Dates: start: 19990501, end: 20050127
  3. SEROQUEL [Suspect]
     Route: 048
     Dates: start: 19990913, end: 20050127
  4. SEROQUEL [Suspect]
     Route: 048
     Dates: start: 19990913, end: 20050127
  5. SEROQUEL [Suspect]
     Dosage: 25-200 MG
     Route: 048
     Dates: start: 20020612
  6. SEROQUEL [Suspect]
     Dosage: 25-200 MG
     Route: 048
     Dates: start: 20020612
  7. BUSPAR [Concomitant]
     Route: 048
  8. ACETAMINOPHEN [Concomitant]
     Route: 048
  9. ZITHROMAX [Concomitant]
     Route: 048
  10. IBUPROFEN [Concomitant]
     Dosage: 400-800 MG
     Route: 048
  11. MAXZIDE [Concomitant]
     Route: 048
  12. TOPROL-XL [Concomitant]
     Dosage: 25-100 MG
     Route: 048
  13. CLONAZEPAM [Concomitant]
     Route: 048
  14. GEODON [Concomitant]
     Dosage: 40-80 MG
     Route: 048
     Dates: start: 20040101, end: 20090101
  15. PREVACID [Concomitant]
     Route: 048
  16. NAPROXEN [Concomitant]
     Dosage: 375-500 MG
     Route: 048
  17. PROTONIX [Concomitant]
     Route: 048
  18. PSEUDOEPHEDRINE [Concomitant]
     Route: 048
  19. ABILIFY [Concomitant]
  20. THORAZINE [Concomitant]
  21. ZYPREXA [Concomitant]
     Indication: SCHIZOPHRENIA
  22. ZYPREXA [Concomitant]
     Indication: BIPOLAR DISORDER

REACTIONS (9)
  - ANXIETY [None]
  - CARPAL TUNNEL SYNDROME [None]
  - DIABETIC COMA [None]
  - DIABETIC KETOACIDOSIS [None]
  - DIABETIC NEUROPATHY [None]
  - OBESITY [None]
  - RENAL DISORDER [None]
  - TYPE 2 DIABETES MELLITUS [None]
  - URINARY INCONTINENCE [None]
